FAERS Safety Report 7650262-2 (Version None)
Quarter: 2011Q3

REPORT INFORMATION
  Report Type: 
  Country: None (occurrence: None)
  Receive Date: 20110802
  Receipt Date: 20110722
  Transmission Date: 20111222
  Serious: Yes (Other)
  Sender: FDA-Public Use
  Company Number: JP-ROCHE-793104

PATIENT
  Sex: Female

DRUGS (1)
  1. HERCEPTIN [Suspect]
     Indication: BREAST CANCER
     Dosage: FORM: INJECTION
     Route: 041
     Dates: start: 20070101, end: 20090701

REACTIONS (4)
  - FEELING COLD [None]
  - DEPRESSION [None]
  - HYPOAESTHESIA [None]
  - COLD SWEAT [None]
